FAERS Safety Report 10572993 (Version 1)
Quarter: 2014Q4

REPORT INFORMATION
  Report Type: Spontaneous
  Country: US (occurrence: None)
  Receive Date: 20141107
  Receipt Date: 20141107
  Transmission Date: 20150529
  Serious: No
  Sender: FDA-Public Use
  Company Number: None

PATIENT
  Age: 53 Year
  Sex: Female

DRUGS (1)
  1. OXYBUTYNIN ER [Suspect]
     Active Substance: OXYBUTYNIN
     Indication: URGE INCONTINENCE
     Route: 048
     Dates: start: 20140925, end: 20141104

REACTIONS (1)
  - Dry mouth [None]

NARRATIVE: CASE EVENT DATE: 20141104
